FAERS Safety Report 8304879-2 (Version None)
Quarter: 2012Q2

REPORT INFORMATION
  Report Type: 
  Country: None (occurrence: None)
  Receive Date: 20120423
  Receipt Date: 20120417
  Transmission Date: 20120825
  Serious: Yes (Other)
  Sender: FDA-Public Use
  Company Number: JP-EISAI INC-E2090-02087-SPO-JP

PATIENT
  Sex: Male

DRUGS (5)
  1. WARFARIN SODIUM [Concomitant]
     Route: 048
     Dates: start: 20120216
  2. ZONISAMIDE [Suspect]
     Indication: ESSENTIAL TREMOR
     Route: 048
     Dates: start: 20120315, end: 20120412
  3. SEROQUEL [Concomitant]
     Indication: SEDATIVE THERAPY
     Route: 048
     Dates: start: 20120218
  4. GRAMALIL [Concomitant]
     Indication: SEDATIVE THERAPY
     Route: 048
     Dates: start: 20120222
  5. CARBIDOPA AND LEVODOPA [Concomitant]
     Route: 048
     Dates: start: 20120216

REACTIONS (1)
  - STEVENS-JOHNSON SYNDROME [None]
